FAERS Safety Report 8030196-4 (Version None)
Quarter: 2012Q1

REPORT INFORMATION
  Report Type: 
  Country: None (occurrence: None)
  Receive Date: 20120109
  Receipt Date: 20120105
  Transmission Date: 20120608
  Serious: No
  Sender: FDA-Public Use
  Company Number: US-B.I. PHARMACEUTICALS,INC./RIDGEFIELD-2011-BP-18829BP

PATIENT
  Sex: Female

DRUGS (3)
  1. PRADAXA [Suspect]
     Dosage: 450 MG
     Route: 048
     Dates: start: 20110104, end: 20110104
  2. TOPROL-XL [Concomitant]
     Indication: ATRIAL FIBRILLATION
     Dosage: 25 MG
     Route: 048
  3. PRADAXA [Suspect]
     Indication: ATRIAL FIBRILLATION
     Dosage: 300 MG
     Route: 048
     Dates: start: 20110801

REACTIONS (8)
  - ABDOMINAL PAIN UPPER [None]
  - INSOMNIA [None]
  - PARAESTHESIA ORAL [None]
  - RASH [None]
  - DIARRHOEA [None]
  - BACK PAIN [None]
  - PRURITUS [None]
  - ACCIDENTAL OVERDOSE [None]
